FAERS Safety Report 22532756 (Version 1)
Quarter: 2023Q2

REPORT INFORMATION
  Report Type: Spontaneous
  Country: FR (occurrence: FR)
  Receive Date: 20230607
  Receipt Date: 20230607
  Transmission Date: 20230722
  Serious: Yes (Other)
  Sender: FDA-Public Use
  Company Number: None

PATIENT
  Age: 64 Year
  Sex: Female
  Weight: 97.1 kg

DRUGS (15)
  1. CIPROFLOXACIN [Suspect]
     Active Substance: CIPROFLOXACIN
     Indication: Pseudomonas infection
     Dosage: 1500 MILLIGRAM, QD
     Route: 042
     Dates: start: 20210324
  2. OXYCODONE [Suspect]
     Active Substance: OXYCODONE
     Indication: Analgesic therapy
     Dosage: 30 MG,QD (30 MILLIGRAM, QD)
     Route: 042
     Dates: start: 20210324
  3. ATARAX [Suspect]
     Active Substance: HYDROXYZINE HYDROCHLORIDE
     Indication: Anxiolytic therapy
     Dosage: 50 MG, Q24H (25MG PAR JOUR ENTRE LE 19/03/2021 ET LE 29/03/2021 PUIS 50MG PAR JOUR ? PARTIR DU 29/03
     Route: 048
     Dates: start: 20210319
  4. ESCITALOPRAM OXALATE [Suspect]
     Active Substance: ESCITALOPRAM OXALATE
     Indication: Antidepressant therapy
     Dosage: 10 MG,QD (10 MILLIGRAM, QD)
     Route: 048
     Dates: start: 20210324
  5. DITROPAN [Suspect]
     Active Substance: OXYBUTYNIN CHLORIDE
     Indication: Hypertonic bladder
     Dosage: 5 MG,QD (5 MILLIGRAM, QD)
     Route: 048
     Dates: start: 20210316
  6. LANSOPRAZOLE [Suspect]
     Active Substance: LANSOPRAZOLE
     Indication: Gastrooesophageal reflux prophylaxis
     Dosage: 15 MG, QD
     Route: 048
     Dates: start: 20210320
  7. CEFTAZIDIME [Suspect]
     Active Substance: CEFTAZIDIME
     Indication: Pseudomonas infection
     Dosage: 6 G, Q24H (3*2G PAR 24H)
     Route: 042
     Dates: start: 20210324
  8. ACUPAN [Suspect]
     Active Substance: NEFOPAM HYDROCHLORIDE
     Indication: Analgesic therapy
     Dosage: 120 MG,QD (120 MILLIGRAM, QD)
     Route: 042
     Dates: start: 20210327
  9. ACUPAN [Suspect]
     Active Substance: NEFOPAM HYDROCHLORIDE
     Indication: Chest pain
     Dosage: 100 MILLIGRAM, QD
     Route: 048
  10. NOVORAPID [Concomitant]
     Active Substance: INSULIN ASPART
     Indication: Product used for unknown indication
     Dosage: UNK (UNK)
     Route: 065
  11. ACETAMINOPHEN [Concomitant]
     Active Substance: ACETAMINOPHEN
     Indication: Product used for unknown indication
     Dosage: UNK (UNK)
     Route: 065
  12. TOUJEO [Concomitant]
     Active Substance: INSULIN GLARGINE
     Indication: Product used for unknown indication
     Dosage: UNK (UNK)
     Route: 065
  13. LOPERAMIDE [Concomitant]
     Active Substance: LOPERAMIDE
     Indication: Product used for unknown indication
     Dosage: UNK (UNK)
     Route: 065
  14. PHLOROGLUCIN [Concomitant]
     Indication: Product used for unknown indication
     Dosage: UNK (UNK)
     Route: 065
  15. ATROPINE [Concomitant]
     Active Substance: ATROPINE
     Indication: Pelvic pain
     Dosage: UNK (UNK)
     Route: 065

REACTIONS (3)
  - Myoclonus [Recovered/Resolved]
  - Pseudomonas infection [Unknown]
  - Hallucination [Recovered/Resolved]

NARRATIVE: CASE EVENT DATE: 20210329
